FAERS Safety Report 9599264 (Version 1)
Quarter: 2013Q4

REPORT INFORMATION
  Report Type: Spontaneous
  Country: US (occurrence: US)
  Receive Date: 20131004
  Receipt Date: 20131004
  Transmission Date: 20140711
  Serious: Yes (Other)
  Sender: FDA-Public Use
  Company Number: US-AMGEN-USASP2013028009

PATIENT
  Age: 21 Year
  Sex: Female

DRUGS (4)
  1. ENBREL [Suspect]
     Indication: RHEUMATOID ARTHRITIS
     Dosage: UNK UNK, QWK
     Dates: start: 20090301, end: 201012
  2. METHOTREXATE [Concomitant]
     Dosage: UNK
     Dates: start: 201208, end: 201208
  3. HUMIRA [Concomitant]
     Dosage: UNK
     Dates: start: 2011, end: 201208
  4. ARAVA [Concomitant]
     Dosage: UNK
     Dates: start: 201208

REACTIONS (5)
  - Uveitis [Not Recovered/Not Resolved]
  - Pain [Recovered/Resolved]
  - Fatigue [Recovered/Resolved]
  - Malaise [Recovered/Resolved]
  - Arthritis [Not Recovered/Not Resolved]
